FAERS Safety Report 7523173 (Version 9)
Quarter: 2014Q3

REPORT INFORMATION
  Report Type: Spontaneous
  Country: US (occurrence: US)
  Receive Date: 20100721
  Receipt Date: 20140821
  Transmission Date: 20150326
  Serious: Yes (Hospitalization, Disabling, Other)
  Sender: FDA-Public Use
  Company Number: US-009507513-2010SP026653

PATIENT
  Sex: Female
  Weight: 90.72 kg

DRUGS (3)
  1. DARVOCET-N 100 [Concomitant]
     Active Substance: ACETAMINOPHEN\PROPOXYPHENE NAPSYLATE
  2. NUVARING [Suspect]
     Active Substance: ETHINYL ESTRADIOL\ETONOGESTREL
     Indication: CONTRACEPTION
     Route: 067
     Dates: start: 20020201, end: 20070313
  3. HORMONAL CONTRACEPTIVES (UNSPECIFIED) [Suspect]
     Active Substance: UNSPECIFIED INGREDIENT
     Indication: CONTRACEPTION

REACTIONS (21)
  - Adjustment disorder [Unknown]
  - Cervical dysplasia [Unknown]
  - Hyponatraemia [Unknown]
  - Bronchitis [Unknown]
  - Vulval disorder [Unknown]
  - Anaemia [Recovered/Resolved]
  - Urinary tract infection [Unknown]
  - Pharyngitis [Unknown]
  - Rash [Unknown]
  - Pneumonia [Recovering/Resolving]
  - Pulmonary embolism [Recovered/Resolved]
  - Cellulitis [Unknown]
  - Depressed mood [Unknown]
  - Drug hypersensitivity [Unknown]
  - Haemorrhoids [Unknown]
  - Anxiety [Unknown]
  - Muscle spasms [Unknown]
  - Uterine stenosis [Unknown]
  - Papilloma viral infection [Unknown]
  - Haemorrhoids [Unknown]
  - Herpes simplex [Unknown]

NARRATIVE: CASE EVENT DATE: 20050607
